FAERS Safety Report 23756807 (Version 1)
Quarter: 2024Q2

REPORT INFORMATION
  Report Type: Other
  Country: US (occurrence: US)
  Receive Date: 20240418
  Receipt Date: 20240418
  Transmission Date: 20240716
  Serious: Yes (Hospitalization, Other)
  Sender: FDA-Public Use
  Company Number: US-HLS-202400098

PATIENT
  Age: 58 Year
  Sex: Male

DRUGS (8)
  1. CLOZAPINE [Suspect]
     Active Substance: CLOZAPINE
     Indication: Schizophrenia
     Dosage: 200 MG / ONCE A DAILY
     Route: 065
  2. LEVETIRACETAM [Concomitant]
     Active Substance: LEVETIRACETAM
     Dosage: 1000 MG/D
     Route: 065
  3. MIRTAZAPINE [Concomitant]
     Active Substance: MIRTAZAPINE
     Dosage: 15 MG/D
     Route: 065
  4. LORAZEPAM [Concomitant]
     Active Substance: LORAZEPAM
     Indication: Product used for unknown indication
     Dosage: 2 MG/D
     Route: 065
  5. PIPAMPERONE [Concomitant]
     Active Substance: PIPAMPERONE
     Indication: Product used for unknown indication
     Dosage: 80 MG/D
     Route: 065
  6. ZUCLOPENTHIXOL [Concomitant]
     Active Substance: ZUCLOPENTHIXOL
     Dosage: 75 MG/D
     Route: 065
  7. HALOPERIDOL DECANOATE [Concomitant]
     Active Substance: HALOPERIDOL DECANOATE
     Indication: Product used for unknown indication
     Dosage: 100 MG EVERY 4 WEEKS
     Route: 030
  8. SERTRALINE [Concomitant]
     Active Substance: SERTRALINE HYDROCHLORIDE
     Indication: Product used for unknown indication
     Dosage: 100 MG/D
     Route: 065

REACTIONS (18)
  - Schizophrenia [Unknown]
  - Alpha-1 acid glycoprotein increased [Unknown]
  - Anaemia [Unknown]
  - Overdose [Unknown]
  - Cognitive disorder [Unknown]
  - Cough [Unknown]
  - C-reactive protein increased [Unknown]
  - Decubitus ulcer [Unknown]
  - Epilepsy [Unknown]
  - Pyrexia [Unknown]
  - Somatic symptom disorder [Unknown]
  - Delirium [Unknown]
  - Delusion [Unknown]
  - Pneumonia [Unknown]
  - Psychomotor retardation [Unknown]
  - Sedation [Recovering/Resolving]
  - Diarrhoea [Unknown]
  - Suicidal ideation [Unknown]
